FAERS Safety Report 11795904 (Version 2)
Quarter: 2016Q3

REPORT INFORMATION
  Report Type: Spontaneous
  Country: FR (occurrence: FR)
  Receive Date: 20151203
  Receipt Date: 20160831
  Transmission Date: 20161109
  Serious: Yes (Other)
  Sender: FDA-Public Use
  Company Number: FR-ROCHE-1670921

PATIENT
  Age: 74 Year
  Sex: Female

DRUGS (4)
  1. VEMURAFENIB [Suspect]
     Active Substance: VEMURAFENIB
     Indication: OVARIAN CANCER
     Route: 065
     Dates: start: 20130420
  2. VEMURAFENIB [Suspect]
     Active Substance: VEMURAFENIB
     Route: 048
     Dates: start: 201410
  3. VEMURAFENIB [Suspect]
     Active Substance: VEMURAFENIB
     Route: 048
  4. VEMURAFENIB [Suspect]
     Active Substance: VEMURAFENIB
     Route: 048
     Dates: start: 201309

REACTIONS (2)
  - Off label use [Unknown]
  - Skin toxicity [Unknown]
